FAERS Safety Report 15242035 (Version 1)
Quarter: 2018Q3

REPORT INFORMATION
  Report Type: Spontaneous
  Country: US (occurrence: US)
  Receive Date: 20180806
  Receipt Date: 20180806
  Transmission Date: 20181010
  Serious: Yes (Hospitalization)
  Sender: FDA-Public Use
  Company Number: US-B.I. PHARMACEUTICALS,INC./RIDGEFIELD-2018-BI-038807

PATIENT
  Age: 52 Year
  Sex: Female

DRUGS (1)
  1. COMBIVENT [Suspect]
     Active Substance: ALBUTEROL SULFATE\IPRATROPIUM BROMIDE
     Indication: CHRONIC OBSTRUCTIVE PULMONARY DISEASE
     Dosage: FORM STRENGTH:18 MCG/103 MCG; FORMULATION: INHALATION AEROSOL; ACTIONS TAKEN WITH PRODUCT: NR
     Route: 055
     Dates: start: 2011, end: 2011

REACTIONS (4)
  - Eating disorder [Unknown]
  - Gastric disorder [Unknown]
  - Blood sodium decreased [Unknown]
  - Oxygen saturation decreased [Unknown]

NARRATIVE: CASE EVENT DATE: 201807
